FAERS Safety Report 4425689-2 (Version None)
Quarter: 2004Q3

REPORT INFORMATION
  Report Type: 
  Country: None (occurrence: None)
  Receive Date: 20040810
  Receipt Date: 20040727
  Transmission Date: 20050211
  Serious: Yes (Hospitalization)
  Sender: FDA-Public Use
  Company Number: 8576

PATIENT
  Age: 56 Year
  Sex: Male

DRUGS (1)
  1. METHOTREXATE [Suspect]
     Indication: MENINGEAL NEOPLASM
     Dosage: 10 MG 2/WK IT
     Dates: start: 20031117, end: 20040527

REACTIONS (1)
  - HYDROCEPHALUS [None]
